FAERS Safety Report 12234623 (Version 1)
Quarter: 2016Q2

REPORT INFORMATION
  Report Type: Spontaneous
  Country: FR (occurrence: FR)
  Receive Date: 20160404
  Receipt Date: 20160404
  Transmission Date: 20160815
  Serious: Yes (Death, Hospitalization)
  Sender: FDA-Public Use
  Company Number: PHHY2016FR042951

PATIENT
  Age: 65 Year
  Sex: Male

DRUGS (1)
  1. GLIVEC [Suspect]
     Active Substance: IMATINIB MESYLATE
     Indication: GASTROINTESTINAL STROMAL TUMOUR
     Dosage: 400 MG, QD
     Route: 048
     Dates: start: 201312, end: 20151018

REACTIONS (4)
  - Agranulocytosis [Fatal]
  - Hepatitis cholestatic [Fatal]
  - Acute hepatic failure [Fatal]
  - Hepatitis [Fatal]

NARRATIVE: CASE EVENT DATE: 20151018
